FAERS Safety Report 22209724 (Version 4)
Quarter: 2023Q2

REPORT INFORMATION
  Report Type: Spontaneous
  Country: CA (occurrence: CA)
  Receive Date: 20230414
  Receipt Date: 20230627
  Transmission Date: 20230722
  Serious: Yes (Other)
  Sender: FDA-Public Use
  Company Number: CA-CELLTRION INC.-2023CA005103

PATIENT

DRUGS (4)
  1. INFLECTRA [Suspect]
     Active Substance: INFLIXIMAB-DYYB
     Indication: Colitis ulcerative
     Dosage: 400 MG, W0, W2, W6 AND Q8 WEEKS
     Route: 042
     Dates: start: 20221108
  2. INFLECTRA [Suspect]
     Active Substance: INFLIXIMAB-DYYB
     Dosage: 400 MG, W0, W2, W6 AND Q8 WEEKS
     Route: 042
     Dates: start: 20230215
  3. INFLECTRA [Suspect]
     Active Substance: INFLIXIMAB-DYYB
     Dosage: 400 MG, W0, W2, W6 AND Q8 WEEKS
     Route: 042
     Dates: start: 20230419
  4. MESALAMINE [Concomitant]
     Active Substance: MESALAMINE
     Dosage: UNK

REACTIONS (8)
  - Haemoglobin increased [Not Recovered/Not Resolved]
  - Rash pruritic [Recovered/Resolved]
  - Rash macular [Recovering/Resolving]
  - Candida infection [Recovered/Resolved]
  - COVID-19 [Not Recovered/Not Resolved]
  - White blood cell count decreased [Unknown]
  - Urinary tract infection [Not Recovered/Not Resolved]
  - Oral lichen planus [Not Recovered/Not Resolved]

NARRATIVE: CASE EVENT DATE: 20230101
